FAERS Safety Report 5494736-1 (Version None)
Quarter: 2007Q4

REPORT INFORMATION
  Report Type: 
  Country: None (occurrence: None)
  Receive Date: 20071015
  Receipt Date: 20070826
  Transmission Date: 20080405
  Serious: No
  Sender: FDA-Public Use
  Company Number: 2007SP003000

PATIENT
  Age: 85 Year
  Sex: Female

DRUGS (4)
  1. LUNESTA [Suspect]
     Indication: INSOMNIA
     Dosage: 3 MG; ORAL
     Route: 048
     Dates: start: 20060101, end: 20060101
  2. AMARYL [Concomitant]
  3. ANTIHYPERTENSIVES [Concomitant]
  4. AMBIEN [Concomitant]

REACTIONS (1)
  - NIGHTMARE [None]
